FAERS Safety Report 9932797 (Version 1)
Quarter: 2014Q1

REPORT INFORMATION
  Report Type: Spontaneous
  Country: US (occurrence: US)
  Receive Date: 20140228
  Receipt Date: 20140228
  Transmission Date: 20141002
  Serious: No
  Sender: FDA-Public Use
  Company Number: US-GLAXOSMITHKLINE-A1042528A

PATIENT
  Age: 58 Year
  Sex: Female
  Weight: 79.5 kg

DRUGS (2)
  1. SUMATRIPTAN [Suspect]
     Indication: MIGRAINE
     Route: 065
     Dates: start: 1996
  2. GSK AUTOINJECTOR [Suspect]
     Indication: MIGRAINE
     Dates: start: 1996

REACTIONS (2)
  - Injection site pain [Recovered/Resolved]
  - Product quality issue [Unknown]
